FAERS Safety Report 8611414-8 (Version None)
Quarter: 2012Q3

REPORT INFORMATION
  Report Type: 
  Country: None (occurrence: None)
  Receive Date: 20120822
  Receipt Date: 20120813
  Transmission Date: 20120928
  Serious: Yes (Other)
  Sender: FDA-Public Use
  Company Number: US-ASTRAZENECA-2012SE56851

PATIENT
  Sex: Female

DRUGS (2)
  1. NEXIUM [Suspect]
     Route: 048
  2. MARIJUANA [Suspect]
     Route: 065

REACTIONS (3)
  - DRUG DOSE OMISSION [None]
  - QUALITY OF LIFE DECREASED [None]
  - BEDRIDDEN [None]
